FAERS Safety Report 12463161 (Version 2)
Quarter: 2018Q1

REPORT INFORMATION
  Report Type: Report from Study
  Country: DE (occurrence: DE)
  Receive Date: 20160614
  Receipt Date: 20180316
  Transmission Date: 20180508
  Serious: Yes (Other)
  Sender: FDA-Public Use
  Company Number: DE-SHIRE-DE201607101

PATIENT

DRUGS (2)
  1. VPRIV [Suspect]
     Active Substance: VELAGLUCERASE ALFA
     Indication: GAUCHER^S DISEASE
     Dosage: 58.6 MG (4400IU/KG), 1X/2WKS (BW)
     Route: 041
     Dates: start: 20160519, end: 20160603
  2. VPRIV [Suspect]
     Active Substance: VELAGLUCERASE ALFA
     Dosage: 58.6 MG (4400IU/KG), 1X/2WKS (BW)
     Route: 041
     Dates: start: 20160519

REACTIONS (3)
  - Headache [Recovered/Resolved]
  - Infusion related reaction [Unknown]
  - Ocular hypertension [Recovered/Resolved]

NARRATIVE: CASE EVENT DATE: 20160519
